FAERS Safety Report 15388345 (Version 2)
Quarter: 2018Q4

REPORT INFORMATION
  Report Type: Spontaneous
  Country: US (occurrence: US)
  Receive Date: 20180915
  Receipt Date: 20181004
  Transmission Date: 20190204
  Serious: No
  Sender: FDA-Public Use
  Company Number: US-009507513-1809USA003095

PATIENT
  Sex: Female

DRUGS (3)
  1. BELSOMRA [Suspect]
     Active Substance: SUVOREXANT
     Indication: INSOMNIA
     Dosage: 15 MG, ONCE DAILY IN THE EVENING
     Route: 048
  2. HYDROCODONE [Concomitant]
     Active Substance: HYDROCODONE
  3. XANAX [Concomitant]
     Active Substance: ALPRAZOLAM

REACTIONS (2)
  - Sleep paralysis [Unknown]
  - Nightmare [Unknown]
